FAERS Safety Report 9748516 (Version 1)
Quarter: 2013Q4

REPORT INFORMATION
  Report Type: Spontaneous
  Country: US (occurrence: None)
  Receive Date: 20131211
  Receipt Date: 20131211
  Transmission Date: 20140711
  Serious: Yes (Death, Hospitalization)
  Sender: FDA-Public Use
  Company Number: None

PATIENT
  Age: 56 Year
  Sex: Male
  Weight: 148 kg

DRUGS (2)
  1. CYTARABINE [Suspect]
     Dates: start: 20131025, end: 20131025
  2. IDARUBICIN [Suspect]
     Dates: end: 20131028

REACTIONS (9)
  - Asthenia [None]
  - Incontinence [None]
  - Diarrhoea [None]
  - Fall [None]
  - Tachycardia [None]
  - Atrial flutter [None]
  - Fluid overload [None]
  - Pneumonia [None]
  - Acute respiratory distress syndrome [None]
